FAERS Safety Report 21024591 (Version 1)
Quarter: 2022Q2

REPORT INFORMATION
  Report Type: Spontaneous
  Country: AU (occurrence: AU)
  Receive Date: 20220629
  Receipt Date: 20220629
  Transmission Date: 20220721
  Serious: Yes (Death, Other)
  Sender: FDA-Public Use
  Company Number: AU-SA-SAC20220628000608

PATIENT
  Sex: Male

DRUGS (1)
  1. LIBTAYO [Suspect]
     Active Substance: CEMIPLIMAB-RWLC
     Indication: Skin squamous cell carcinoma metastatic
     Dosage: 350 MG
     Route: 042
     Dates: start: 20220623

REACTIONS (2)
  - Pneumonia aspiration [Fatal]
  - Metastases to lung [Fatal]

NARRATIVE: CASE EVENT DATE: 20220624
